FAERS Safety Report 4280268-5 (Version None)
Quarter: 2004Q1

REPORT INFORMATION
  Report Type: 
  Country: None (occurrence: None)
  Receive Date: 20040126
  Receipt Date: 20040115
  Transmission Date: 20041129
  Serious: Yes (Hospitalization, Other)
  Sender: FDA-Public Use
  Company Number: 2003-12-0780

PATIENT
  Age: 54 Year
  Sex: Male

DRUGS (5)
  1. INTRONA (INTERFERON ALFA-2B RECOMBINANT)  (LIKE INTRON A) [Suspect]
     Indication: METASTATIC MALIGNANT MELANOMA
     Dosage: 37 IV 5X/WK  ; 18 SC TIW
     Route: 042
     Dates: start: 20030707, end: 20030801
  2. INTRONA (INTERFERON ALFA-2B RECOMBINANT)  (LIKE INTRON A) [Suspect]
     Indication: METASTATIC MALIGNANT MELANOMA
     Dosage: 37 IV 5X/WK  ; 18 SC TIW
     Route: 042
     Dates: start: 20030801
  3. LEXOMIL (BROMAZEPAM) [Concomitant]
  4. DEROXAT [Concomitant]
  5. LIPANTHYL [Concomitant]

REACTIONS (3)
  - FIBROSIS [None]
  - LYMPHANGIOSIS CARCINOMATOSA [None]
  - SARCOIDOSIS [None]
